FAERS Safety Report 20208511 (Version 1)
Quarter: 2021Q4

REPORT INFORMATION
  Report Type: Spontaneous
  Country: US (occurrence: None)
  Receive Date: 20211220
  Receipt Date: 20211220
  Transmission Date: 20220303
  Serious: Yes (Hospitalization)
  Sender: FDA-Public Use
  Company Number: None

PATIENT
  Age: 60 Year
  Sex: Female

DRUGS (1)
  1. HUMIRA [Suspect]
     Active Substance: ADALIMUMAB
     Indication: Rheumatoid arthritis
     Dosage: OTHER FREQUENCY : 40MG/0.4ML ;?
     Route: 058
     Dates: start: 20211022

REACTIONS (3)
  - Cellulitis [None]
  - Chronic obstructive pulmonary disease [None]
  - Product storage error [None]

NARRATIVE: CASE EVENT DATE: 20211214
